FAERS Safety Report 11081641 (Version 1)
Quarter: 2015Q2

REPORT INFORMATION
  Report Type: Spontaneous
  Country: US (occurrence: None)
  Receive Date: 20150429
  Receipt Date: 20150429
  Transmission Date: 20150821
  Serious: Yes (Hospitalization)
  Sender: FDA-Public Use
  Company Number: NSR_02053_2015

PATIENT
  Age: 60 Year
  Sex: Female

DRUGS (3)
  1. ALLOPURINOL. [Suspect]
     Active Substance: ALLOPURINOL
     Indication: GOUT
     Dosage: DF
  2. METOPROLOL [Concomitant]
     Active Substance: METOPROLOL
  3. DILTIAZEM [Concomitant]
     Active Substance: DILTIAZEM

REACTIONS (5)
  - Toxic epidermal necrolysis [None]
  - Renal failure [None]
  - Anaemia [None]
  - Hypokalaemia [None]
  - Hypomagnesaemia [None]
